FAERS Safety Report 25649808 (Version 1)
Quarter: 2025Q3

REPORT INFORMATION
  Report Type: Spontaneous
  Country: CL (occurrence: CL)
  Receive Date: 20250806
  Receipt Date: 20250806
  Transmission Date: 20251020
  Serious: Yes (Other)
  Sender: AMERICAN REGENT
  Company Number: CL-AMERICAN REGENT INC-2025002996

PATIENT
  Age: 31 Year
  Sex: Male

DRUGS (1)
  1. FERINJECT [Suspect]
     Active Substance: FERRIC CARBOXYMALTOSE
     Indication: Iron deficiency anaemia
     Route: 042

REACTIONS (3)
  - Fibroblast growth factor 23 increased [Recovered/Resolved]
  - Urine phosphorus increased [Recovered/Resolved]
  - Hypophosphataemia [Recovered/Resolved]
